FAERS Safety Report 4780090-7 (Version None)
Quarter: 2005Q3

REPORT INFORMATION
  Report Type: 
  Country: None (occurrence: None)
  Receive Date: 20050914
  Receipt Date: 20050427
  Transmission Date: 20060218
  Serious: Yes (Hospitalization)
  Sender: FDA-Public Use
  Company Number: 163-20785-05040558

PATIENT
  Age: 60 Year
  Sex: Female

DRUGS (14)
  1. THALOMID [Suspect]
     Indication: MULTIPLE MYELOMA
     Dates: start: 20010208, end: 20030101
  2. DEXAMETHASONE [Suspect]
     Indication: MULTIPLE MYELOMA
     Dates: start: 20010208, end: 20010618
  3. DEXAMETHASONE [Suspect]
     Indication: MULTIPLE MYELOMA
     Dates: start: 20020204, end: 20030101
  4. VINCRISTINE [Suspect]
     Indication: MULTIPLE MYELOMA
     Dates: start: 20010208
  5. ADRIAMYCIN PFS [Suspect]
     Indication: MULTIPLE MYELOMA
     Dates: start: 20010208
  6. CYTOXAN [Suspect]
     Indication: MULTIPLE MYELOMA
     Dates: start: 20010416
  7. CYTOXAN [Suspect]
     Indication: MULTIPLE MYELOMA
     Dates: start: 20010618
  8. ETOPOSIDE [Suspect]
     Indication: MULTIPLE MYELOMA
     Dates: start: 20010416
  9. ETOPOSIDE [Suspect]
     Indication: MULTIPLE MYELOMA
     Dates: start: 20010618
  10. PLATINOL [Suspect]
     Indication: MULTIPLE MYELOMA
     Dates: start: 20010416
  11. PLATINOL [Suspect]
     Indication: MULTIPLE MYELOMA
     Dates: start: 20010618
  12. DACARBAZINE [Suspect]
     Indication: MULTIPLE MYELOMA
     Dates: start: 20010525
  13. MELPHALAN (MELPHALAN) [Suspect]
     Indication: MULTIPLE MYELOMA
     Dosage: 200,
     Dates: start: 20010801
  14. MELPHALAN (MELPHALAN) [Suspect]
     Indication: MULTIPLE MYELOMA
     Dosage: 200,
     Dates: start: 20011130

REACTIONS (3)
  - ASTHENIA [None]
  - CONVULSION [None]
  - PNEUMONIA [None]
